FAERS Safety Report 16003970 (Version 1)
Quarter: 2019Q1

REPORT INFORMATION
  Report Type: Spontaneous
  Country: RO (occurrence: RO)
  Receive Date: 20190226
  Receipt Date: 20190226
  Transmission Date: 20190418
  Serious: Yes (Hospitalization, Other)
  Sender: FDA-Public Use
  Company Number: RO-SA-2019SA044960

PATIENT
  Sex: Male

DRUGS (5)
  1. SOLIQUA 100/33 [Suspect]
     Active Substance: INSULIN GLARGINE\LIXISENATIDE
     Indication: TYPE 2 DIABETES MELLITUS
     Dosage: 20-40 DOSING STEPS
     Route: 065
     Dates: start: 20181112
  2. SOLOSTAR [Suspect]
     Active Substance: DEVICE
  3. METFORMIN [Concomitant]
     Active Substance: METFORMIN HYDROCHLORIDE
  4. THIOSSEN [Concomitant]
     Active Substance: THIOCTIC ACID
  5. PENTOXIFYLLINE. [Concomitant]
     Active Substance: PENTOXIFYLLINE

REACTIONS (5)
  - Glycosylated haemoglobin increased [Unknown]
  - Inflammation [Unknown]
  - Red blood cell sedimentation rate abnormal [Unknown]
  - Diabetic metabolic decompensation [Unknown]
  - Weight increased [Unknown]

NARRATIVE: CASE EVENT DATE: 20190107
